APPROVED DRUG PRODUCT: TIMOLOL
Active Ingredient: TIMOLOL
Strength: 0.5%
Dosage Form/Route: SOLUTION/DROPS;OPHTHALMIC
Application: A216654 | Product #001 | TE Code: AT
Applicant: SOMERSET THERAPEUTICS LLC
Approved: Oct 10, 2024 | RLD: No | RS: No | Type: RX